FAERS Safety Report 6567271-7 (Version None)
Quarter: 2010Q1

REPORT INFORMATION
  Report Type: 
  Country: None (occurrence: None)
  Receive Date: 20100202
  Receipt Date: 20100125
  Transmission Date: 20100710
  Serious: Yes (Other)
  Sender: FDA-Public Use
  Company Number: GB-ABBOTT-10P-167-0622279-00

PATIENT
  Age: 5 Year
  Sex: Female

DRUGS (3)
  1. EPILIM [Suspect]
     Indication: EPILEPSY
     Route: 048
  2. FRESH MILK [Interacting]
     Indication: DRUG USE FOR UNKNOWN INDICATION
  3. LAMOTRIGINE [Concomitant]
     Indication: DRUG USE FOR UNKNOWN INDICATION

REACTIONS (2)
  - CONVULSION [None]
  - FOOD INTERACTION [None]
